FAERS Safety Report 6036461-4 (Version None)
Quarter: 2009Q1

REPORT INFORMATION
  Report Type: 
  Country: None (occurrence: None)
  Receive Date: 20090112
  Receipt Date: 20081231
  Transmission Date: 20090719
  Serious: Yes (Other)
  Sender: FDA-Public Use
  Company Number: CHPA2008US23704

PATIENT
  Age: 29 Year
  Sex: Male

DRUGS (2)
  1. EXCEDRIN ES BACK + BODY (NCH) (ACETYLSALICYLIC ACID, ACETAMINOPHEN (PA [Suspect]
     Dosage: 2 DF, Q4H, ORAL; 1 DF, Q3H, ORAL
     Route: 048
     Dates: start: 20081230, end: 20081231
  2. EXCEDRIN ES BACK + BODY (NCH) (ACETYLSALICYLIC ACID, ACETAMINOPHEN (PA [Suspect]
     Dosage: 2 DF, Q4H, ORAL; 1 DF, Q3H, ORAL
     Route: 048
     Dates: start: 20081230, end: 20081231

REACTIONS (3)
  - CHEST PAIN [None]
  - OVERDOSE [None]
  - WHEEZING [None]
